FAERS Safety Report 23380887 (Version 1)
Quarter: 2024Q1

REPORT INFORMATION
  Report Type: Spontaneous
  Country: IN (occurrence: IN)
  Receive Date: 20240109
  Receipt Date: 20240109
  Transmission Date: 20240410
  Serious: Yes (Other)
  Sender: FDA-Public Use
  Company Number: IN-MLMSERVICE-20231227-4745003-1

PATIENT
  Age: 5 Decade
  Sex: Female

DRUGS (8)
  1. PREDNISOLONE ACETATE [Suspect]
     Active Substance: PREDNISOLONE ACETATE
     Indication: Nocardiosis
     Route: 061
  2. PREDNISOLONE ACETATE [Suspect]
     Active Substance: PREDNISOLONE ACETATE
     Indication: Scleritis
  3. PREDNISOLONE [Suspect]
     Active Substance: PREDNISOLONE
     Indication: Nocardiosis
     Route: 048
  4. PREDNISOLONE [Suspect]
     Active Substance: PREDNISOLONE
     Indication: Scleritis
  5. AMIKACIN [Concomitant]
     Active Substance: AMIKACIN
     Indication: Scleritis
     Route: 061
  6. AMIKACIN [Concomitant]
     Active Substance: AMIKACIN
     Indication: Nocardiosis
  7. CIPROFLOXACIN [Concomitant]
     Active Substance: CIPROFLOXACIN
     Indication: Scleritis
     Route: 048
  8. CIPROFLOXACIN [Concomitant]
     Active Substance: CIPROFLOXACIN
     Indication: Nocardiosis

REACTIONS (3)
  - Scleritis [Recovered/Resolved]
  - Disease recurrence [Recovered/Resolved]
  - Nocardiosis [Recovered/Resolved]
